FAERS Safety Report 21044593 (Version 2)
Quarter: 2022Q3

REPORT INFORMATION
  Report Type: Spontaneous
  Country: ES (occurrence: ES)
  Receive Date: 20220705
  Receipt Date: 20220726
  Transmission Date: 20221026
  Serious: Yes (Life-Threatening)
  Sender: FDA-Public Use
  Company Number: None

PATIENT
  Sex: Male

DRUGS (10)
  1. CEFTAROLINE FOSAMIL [Suspect]
     Active Substance: CEFTAROLINE FOSAMIL
     Indication: Staphylococcal infection
     Dosage: 600 MG, Q8HR
     Route: 042
     Dates: start: 20220619, end: 20220621
  2. ENOXAPARIN [Suspect]
     Active Substance: ENOXAPARIN
     Indication: Embolism
     Dosage: 40 MG, QD
     Route: 058
     Dates: start: 20220520, end: 20220621
  3. LEVETIRACETAM ALMUS [Concomitant]
     Indication: Epilepsy
     Dosage: 500 MG, QD
     Dates: start: 20220517
  4. ESIDREX [Concomitant]
     Active Substance: HYDROCHLOROTHIAZIDE
     Indication: Hypertension
     Dosage: 25 MG, QD
     Route: 048
     Dates: start: 20220517
  5. ATORVASTATINA ABEX [Concomitant]
     Indication: Hypercholesterolaemia
     Dosage: 20 MG, QD
     Dates: start: 20220517
  6. BUPROPION CINFA [Concomitant]
     Indication: Depression
     Dosage: 150 MG, Q12H
     Dates: start: 20220517
  7. OMEPRAZOLE [Concomitant]
     Active Substance: OMEPRAZOLE
     Indication: Oesophagitis
     Dosage: 20 MG, QD
     Dates: start: 20220517
  8. LEVOTHYROXINE SODIUM [Concomitant]
     Active Substance: LEVOTHYROXINE SODIUM
     Dosage: 50 MG, QD
     Dates: start: 20220517
  9. ENALAPRIL MALEATE [Concomitant]
     Active Substance: ENALAPRIL MALEATE
     Indication: Hypertension
     Dosage: 20 MG, QD
     Route: 048
     Dates: start: 20220517
  10. PARACETAMOL QUALIGEN [Concomitant]
     Indication: Pain
     Dosage: 1 DF, PRN
     Route: 048
     Dates: start: 20220517

REACTIONS (1)
  - Thrombocytopenia [Unknown]

NARRATIVE: CASE EVENT DATE: 20220621
